FAERS Safety Report 12613532 (Version 1)
Quarter: 2016Q3

REPORT INFORMATION
  Report Type: Spontaneous
  Country: US (occurrence: None)
  Receive Date: 20160801
  Receipt Date: 20160801
  Transmission Date: 20161109
  Serious: No
  Sender: FDA-Public Use
  Company Number: None

PATIENT
  Age: 37 Year
  Sex: Female
  Weight: 72.58 kg

DRUGS (9)
  1. ORSYTHIA [Concomitant]
     Active Substance: ETHINYL ESTRADIOL\LEVONORGESTREL
  2. IRON [Concomitant]
     Active Substance: IRON
  3. METHOTREXATE. [Concomitant]
     Active Substance: METHOTREXATE
  4. ZYRTEC [Concomitant]
     Active Substance: CETIRIZINE HYDROCHLORIDE
  5. FOLIC ACID. [Concomitant]
     Active Substance: FOLIC ACID
  6. ORACEA [Suspect]
     Active Substance: DOXYCYCLINE
     Indication: ACNE
     Route: 048
     Dates: start: 20151214, end: 20160314
  7. DORYX [Suspect]
     Active Substance: DOXYCYCLINE HYCLATE
     Indication: ACNE
     Route: 048
     Dates: start: 20160315, end: 20160726
  8. PROBIOTIC ACIDOPHILUS [Concomitant]
     Active Substance: LACTOBACILLUS ACIDOPHILUS
  9. WOMEN^S MULTI VITAMIN + MINERAL [Concomitant]

REACTIONS (6)
  - Fatigue [None]
  - Ear disorder [None]
  - Ear discomfort [None]
  - Vision blurred [None]
  - Fungal infection [None]
  - Headache [None]

NARRATIVE: CASE EVENT DATE: 20151221
